FAERS Safety Report 6179715-3 (Version None)
Quarter: 2009Q2

REPORT INFORMATION
  Report Type: 
  Country: None (occurrence: None)
  Receive Date: 20090505
  Receipt Date: 20090429
  Transmission Date: 20091009
  Serious: Yes (Other)
  Sender: FDA-Public Use
  Company Number: US-ELI_LILLY_AND_COMPANY-US200904006903

PATIENT
  Age: 54 Year
  Sex: Male
  Weight: 139.23 kg

DRUGS (5)
  1. BYETTA [Suspect]
     Indication: TYPE 2 DIABETES MELLITUS
     Dosage: 5 UG, 2/D
     Route: 058
     Dates: start: 20090301, end: 20090101
  2. BYETTA [Suspect]
     Dosage: 10 UG, 2/D
     Route: 058
     Dates: start: 20090101, end: 20090428
  3. METFORMIN HCL [Concomitant]
     Dosage: 500 MG, 2/D
  4. CAPTOPRIL [Concomitant]
     Dosage: 100 MG, 2/D
  5. COREG [Concomitant]
     Dosage: 25 MG, 2/D

REACTIONS (2)
  - PANCREATITIS [None]
  - SINUSITIS [None]
